FAERS Safety Report 12483969 (Version 1)
Quarter: 2016Q2

REPORT INFORMATION
  Report Type: Spontaneous
  Country: US (occurrence: None)
  Receive Date: 20160620
  Receipt Date: 20160620
  Transmission Date: 20160815
  Serious: Yes (Hospitalization)
  Sender: FDA-Public Use
  Company Number: None

PATIENT
  Age: 86 Year
  Sex: Female
  Weight: 72.9 kg

DRUGS (3)
  1. PLETAL [Concomitant]
     Active Substance: CILOSTAZOL
  2. CLOPIDOGREL [Concomitant]
     Active Substance: CLOPIDOGREL BISULFATE
  3. ELIQUIS [Suspect]
     Active Substance: APIXABAN
     Indication: ATRIAL FIBRILLATION
     Route: 048
     Dates: start: 20160601, end: 20160602

REACTIONS (9)
  - Pancreatitis [None]
  - Melaena [None]
  - Atrial fibrillation [None]
  - Abdominal distension [None]
  - Haemoglobin decreased [None]
  - Diarrhoea [None]
  - Heart rate increased [None]
  - Gastrointestinal inflammation [None]
  - Clostridium test positive [None]

NARRATIVE: CASE EVENT DATE: 20160602
